FAERS Safety Report 12503219 (Version 2)
Quarter: 2016Q3

REPORT INFORMATION
  Report Type: Spontaneous
  Country: PL (occurrence: PL)
  Receive Date: 20160628
  Receipt Date: 20160726
  Transmission Date: 20161109
  Serious: Yes (Hospitalization)
  Sender: FDA-Public Use
  Company Number: PL-ACCORD-041857

PATIENT
  Age: 26 Year
  Sex: Male

DRUGS (2)
  1. ARIPIPRAZOLE. [Suspect]
     Active Substance: ARIPIPRAZOLE
     Indication: MANIA
  2. QUETIAPINE. [Suspect]
     Active Substance: QUETIAPINE
     Indication: MANIA

REACTIONS (8)
  - Speech disorder [Unknown]
  - Dysphagia [Recovered/Resolved]
  - Dysarthria [Recovered/Resolved]
  - Dyskinesia [Not Recovered/Not Resolved]
  - Postural tremor [Not Recovered/Not Resolved]
  - Neurological decompensation [Unknown]
  - Therapy non-responder [Unknown]
  - Salivary hypersecretion [Unknown]
